FAERS Safety Report 5102635-X (Version None)
Quarter: 2006Q3

REPORT INFORMATION
  Report Type: 
  Country: None (occurrence: None)
  Receive Date: 20060912
  Receipt Date: 20060905
  Transmission Date: 20061208
  Serious: Yes (Other)
  Sender: FDA-Public Use
  Company Number: US-JNJFOC-20060900973

PATIENT
  Sex: Female
  Weight: 58.97 kg

DRUGS (9)
  1. REMICADE [Suspect]
     Dosage: 1ST MAINTENANCE DOSE
     Route: 042
  2. REMICADE [Suspect]
     Dosage: WEEK 6
     Route: 042
  3. REMICADE [Suspect]
     Dosage: WEEK 2
     Route: 042
  4. REMICADE [Suspect]
     Indication: CROHN'S DISEASE
     Dosage: WEEK 0
     Route: 042
  5. ZANTAC [Concomitant]
  6. PREDNISONE TAB [Concomitant]
  7. NIFEREX [Concomitant]
  8. OMEPRAZOLE [Concomitant]
  9. IMODIUM [Concomitant]

REACTIONS (1)
  - OSTEONECROSIS [None]
